FAERS Safety Report 9158174 (Version 2)
Quarter: 2013Q1

REPORT INFORMATION
  Report Type: Spontaneous
  Country: GR (occurrence: None)
  Receive Date: 20130123
  Receipt Date: 20130220
  Transmission Date: 20140127
  Serious: Yes (Other)
  Sender: FDA-Public Use
  Company Number: THQ2013A00817

PATIENT
  Age: 49 Year
  Sex: Male

DRUGS (2)
  1. COMPETACT [Suspect]
     Indication: TYPE 2 DIABETES MELLITUS
     Route: 048
     Dates: start: 20121116, end: 20121212
  2. GLUCOPHAGE [Concomitant]

REACTIONS (1)
  - Erectile dysfunction [None]
